FAERS Safety Report 9026996 (Version 1)
Quarter: 2013Q1

REPORT INFORMATION
  Report Type: Spontaneous
  Country: US (occurrence: US)
  Receive Date: 20130123
  Receipt Date: 20130123
  Transmission Date: 20140127
  Serious: Yes (Other)
  Sender: FDA-Public Use
  Company Number: US-SANOFI-AVENTIS-2013SA002617

PATIENT
  Age: 57 Year
  Sex: Male

DRUGS (1)
  1. JEVTANA [Suspect]
     Indication: PROSTATE CANCER
     Route: 041
     Dates: start: 20130102, end: 20130102

REACTIONS (3)
  - Ophthalmoplegia [Not Recovered/Not Resolved]
  - Vision blurred [Not Recovered/Not Resolved]
  - Diplopia [Not Recovered/Not Resolved]
